FAERS Safety Report 10664193 (Version 1)
Quarter: 2014Q4

REPORT INFORMATION
  Report Type: Spontaneous
  Country: DE (occurrence: None)
  Receive Date: 20141217
  Receipt Date: 20141217
  Transmission Date: 20150529
  Serious: Yes (Other)
  Sender: FDA-Public Use
  Company Number: DE-2014VAL000657

PATIENT
  Age: 34 Year
  Sex: Female

DRUGS (2)
  1. FOLIO [Concomitant]
     Active Substance: FOLIC ACID
  2. METOPROLOL TARTRATE. [Suspect]
     Active Substance: METOPROLOL TARTRATE
     Indication: ATRIAL FIBRILLATION
     Dates: start: 20121115, end: 20130810

REACTIONS (6)
  - Caesarean section [None]
  - Transverse presentation [None]
  - Placental insufficiency [None]
  - Uterine haematoma [None]
  - Maternal exposure during pregnancy [None]
  - Pregnancy [None]
